FAERS Safety Report 4307869-X (Version None)
Quarter: 2004Q1

REPORT INFORMATION
  Report Type: 
  Country: None (occurrence: None)
  Receive Date: 20040226
  Receipt Date: 20030102
  Transmission Date: 20041129
  Serious: Yes (Hospitalization)
  Sender: FDA-Public Use
  Company Number: 2002136966US

PATIENT
  Age: 47 Year
  Sex: Female

DRUGS (4)
  1. CELEBREX [Suspect]
     Dosage: 200 MG, UNK; ORAL (SEE IMAGE)
     Route: 048
  2. GEODON [Suspect]
     Indication: BIPOLAR DISORDER
     Dosage: 20 MG, QD; ORAL
     Route: 048
  3. TEGRETOL [Concomitant]
  4. LAMICTAL [Concomitant]

REACTIONS (9)
  - ALANINE AMINOTRANSFERASE INCREASED [None]
  - ASPARTATE AMINOTRANSFERASE INCREASED [None]
  - BILIRUBIN CONJUGATED INCREASED [None]
  - BLOOD ALKALINE PHOSPHATASE INCREASED [None]
  - GAMMA-GLUTAMYLTRANSFERASE INCREASED [None]
  - INFLUENZA LIKE ILLNESS [None]
  - LIVER FUNCTION TEST ABNORMAL [None]
  - NAUSEA [None]
  - VOMITING [None]
